FAERS Safety Report 24996672 (Version 2)
Quarter: 2025Q2

REPORT INFORMATION
  Report Type: Spontaneous
  Country: SA (occurrence: SA)
  Receive Date: 20250221
  Receipt Date: 20250404
  Transmission Date: 20250716
  Serious: Yes (Other)
  Sender: AMGEN
  Company Number: SA-AMGEN-SAUSP2025034102

PATIENT
  Age: 30 Year
  Sex: Male

DRUGS (6)
  1. BEVACIZUMAB [Suspect]
     Active Substance: BEVACIZUMAB
     Indication: Retinal vasculitis
     Dosage: UNK, Q4WK (TWO DOSES)
  2. BEVACIZUMAB [Suspect]
     Active Substance: BEVACIZUMAB
     Indication: Prophylaxis
  3. METHYLPREDNISOLONE [Concomitant]
     Active Substance: METHYLPREDNISOLONE
     Indication: Retinal vasculitis
     Dosage: 1 GRAM, QD
     Route: 040
  4. PREDNISOLONE [Concomitant]
     Active Substance: PREDNISOLONE
     Indication: Retinal vasculitis
     Route: 048
  5. PREDNISOLONE [Concomitant]
     Active Substance: PREDNISOLONE
     Route: 048
  6. AZATHIOPRINE [Concomitant]
     Active Substance: AZATHIOPRINE
     Indication: Retinal vasculitis
     Route: 048

REACTIONS (5)
  - Vitreous haemorrhage [Unknown]
  - Retinal degeneration [Unknown]
  - Drug effective for unapproved indication [Unknown]
  - Eye laser scar [Unknown]
  - Off label use [Unknown]
